FAERS Safety Report 16647609 (Version 2)
Quarter: 2019Q3

REPORT INFORMATION
  Report Type: Spontaneous
  Country: US (occurrence: US)
  Receive Date: 20190730
  Receipt Date: 20190802
  Transmission Date: 20191004
  Serious: No
  Sender: FDA-Public Use
  Company Number: US-PFIZER INC-2019325243

PATIENT
  Sex: Female

DRUGS (2)
  1. DEPO-MEDROL [Suspect]
     Active Substance: METHYLPREDNISOLONE ACETATE
     Indication: ARTHRALGIA
     Dosage: 40 MG, UNK
  2. PROGESTERONE;ESTROGENS [Interacting]
     Active Substance: ESTROGENS\PROGESTERONE
     Dosage: UNK

REACTIONS (4)
  - Headache [Unknown]
  - Flushing [Unknown]
  - Erythema [Unknown]
  - Drug interaction [Unknown]
